FAERS Safety Report 12778953 (Version 1)
Quarter: 2016Q3

REPORT INFORMATION
  Report Type: Spontaneous
  Country: US (occurrence: US)
  Receive Date: 20160926
  Receipt Date: 20160926
  Transmission Date: 20161109
  Serious: No
  Sender: FDA-Public Use
  Company Number: US-JAZZ-2016-US-010483

PATIENT
  Sex: Female

DRUGS (29)
  1. MARINOL [Concomitant]
     Active Substance: DRONABINOL
  2. XANAX [Concomitant]
     Active Substance: ALPRAZOLAM
  3. XYREM [Suspect]
     Active Substance: SODIUM OXYBATE
     Dosage: 5.25 G, TID
     Dates: start: 201405, end: 2014
  4. XYREM [Suspect]
     Active Substance: SODIUM OXYBATE
     Dosage: 3 G, BID
     Route: 048
     Dates: start: 201606
  5. METHOCARBAMOL. [Concomitant]
     Active Substance: METHOCARBAMOL
  6. EDLUAR [Concomitant]
     Active Substance: ZOLPIDEM TARTRATE
  7. MYRBETRIQ ER [Concomitant]
  8. PROMETRIUM [Concomitant]
     Active Substance: PROGESTERONE
  9. XYREM [Suspect]
     Active Substance: SODIUM OXYBATE
     Indication: CATAPLEXY
     Dosage: DOSE ADJUSTMENTS
     Route: 048
  10. TOPAMAX [Concomitant]
     Active Substance: TOPIRAMATE
  11. FLURAZEPAM [Concomitant]
     Active Substance: FLURAZEPAM\FLURAZEPAM HYDROCHLORIDE
  12. TRAZODONE [Concomitant]
     Active Substance: TRAZODONE HYDROCHLORIDE
  13. GABAPENTIN. [Concomitant]
     Active Substance: GABAPENTIN
  14. SYNTHROID [Concomitant]
     Active Substance: LEVOTHYROXINE SODIUM
  15. CYMBALTA [Concomitant]
     Active Substance: DULOXETINE HYDROCHLORIDE
  16. XYREM [Suspect]
     Active Substance: SODIUM OXYBATE
     Dosage: 5.25 G, TID
     Dates: start: 201503, end: 2015
  17. PROMETHAZINE [Concomitant]
     Active Substance: PROMETHAZINE\PROMETHAZINE HYDROCHLORIDE
  18. BUMETANIDE. [Concomitant]
     Active Substance: BUMETANIDE
  19. FROVA [Concomitant]
     Active Substance: FROVATRIPTAN SUCCINATE
  20. ALPRAZOLAM ER [Concomitant]
     Active Substance: ALPRAZOLAM
  21. XYREM [Suspect]
     Active Substance: SODIUM OXYBATE
     Indication: NARCOLEPSY
     Dosage: 3 G, BID
     Route: 048
     Dates: start: 201304, end: 201304
  22. HYDROXYZINE HCL [Concomitant]
     Active Substance: HYDROXYZINE HYDROCHLORIDE
  23. CLONIDINE HCL [Concomitant]
     Active Substance: CLONIDINE HYDROCHLORIDE
  24. AMITIZA [Concomitant]
     Active Substance: LUBIPROSTONE
  25. XYREM [Suspect]
     Active Substance: SODIUM OXYBATE
     Dosage: 2.25 G, BID
     Route: 048
     Dates: start: 201605, end: 201606
  26. ZOLPIDEM TARTATE ER [Concomitant]
  27. CLONAZEPAM. [Concomitant]
     Active Substance: CLONAZEPAM
  28. SOMA [Concomitant]
     Active Substance: CARISOPRODOL
  29. POTASSIUM CL ER [Concomitant]
     Active Substance: POTASSIUM CHLORIDE

REACTIONS (2)
  - Malaise [Unknown]
  - Anxiety [Unknown]
